FAERS Safety Report 15521833 (Version 1)
Quarter: 2018Q4

REPORT INFORMATION
  Report Type: Report from Study
  Country: US (occurrence: US)
  Receive Date: 20181017
  Receipt Date: 20181017
  Transmission Date: 20190205
  Serious: No
  Sender: FDA-Public Use
  Company Number: US-AMGEN-USASL2018116897

PATIENT
  Age: 54 Year
  Sex: Female
  Weight: 73.16 kg

DRUGS (1)
  1. REPATHA [Suspect]
     Active Substance: EVOLOCUMAB
     Indication: BLOOD CHOLESTEROL INCREASED
     Dosage: 140 MG, Q2WK
     Route: 065
     Dates: start: 20180806

REACTIONS (6)
  - Swelling face [Unknown]
  - Rash [Unknown]
  - Influenza [Unknown]
  - Musculoskeletal disorder [Unknown]
  - Feeling abnormal [Unknown]
  - Arthropathy [Unknown]

NARRATIVE: CASE EVENT DATE: 20180821
